FAERS Safety Report 16309021 (Version 2)
Quarter: 2019Q3

REPORT INFORMATION
  Report Type: Spontaneous
  Country: US (occurrence: US)
  Receive Date: 20190514
  Receipt Date: 20190702
  Transmission Date: 20191004
  Serious: No
  Sender: FDA-Public Use
  Company Number: US-PFIZER INC-2019198873

PATIENT
  Sex: Female

DRUGS (11)
  1. KERYDIN [Suspect]
     Active Substance: TAVABOROLE
     Dosage: UNK
     Dates: start: 20170526, end: 20180526
  2. COENZYME Q10 [Concomitant]
     Active Substance: UBIDECARENONE
     Dosage: UNK
  3. BIOTIN [Concomitant]
     Active Substance: BIOTIN
     Dosage: UNK
  4. KERYDIN [Suspect]
     Active Substance: TAVABOROLE
     Dosage: UNK
     Dates: start: 20180413
  5. VITAMIN D [COLECALCIFEROL] [Concomitant]
     Active Substance: CHOLECALCIFEROL
     Dosage: UNK
  6. ZEAXANTHIN [Concomitant]
     Active Substance: ZEAXANTHIN
     Dosage: 5 MG, UNK
  7. KERYDIN [Suspect]
     Active Substance: TAVABOROLE
     Dosage: UNK
     Dates: start: 2016, end: 20170124
  8. FISH OIL [Concomitant]
     Active Substance: FISH OIL
     Dosage: UNK
  9. SIMVASTATIN. [Concomitant]
     Active Substance: SIMVASTATIN
     Dosage: 5 MG, UNK
  10. CALCIUM + MAGNESIUM [Concomitant]
     Dosage: UNK
  11. LUTEIN [Concomitant]
     Active Substance: LUTEIN
     Dosage: 25 MG, UNK

REACTIONS (4)
  - Off label use [Unknown]
  - Expired product administered [Unknown]
  - Drug ineffective [Unknown]
  - Product use issue [Unknown]
